FAERS Safety Report 8295869-7 (Version None)
Quarter: 2012Q2

REPORT INFORMATION
  Report Type: 
  Country: None (occurrence: None)
  Receive Date: 20120418
  Receipt Date: 20120410
  Transmission Date: 20120825
  Serious: Yes (Hospitalization)
  Sender: FDA-Public Use
  Company Number: US-JNJFOC-20110902029

PATIENT
  Sex: Female
  Weight: 114.31 kg

DRUGS (10)
  1. STELARA [Suspect]
     Indication: PSORIASIS
     Route: 058
     Dates: start: 20110627
  2. DOVONEX [Concomitant]
     Route: 065
  3. CARVEDILOL [Concomitant]
     Route: 048
  4. INSULIN [Concomitant]
     Route: 058
  5. CLOBETASOL PROPIONATE [Concomitant]
     Route: 065
  6. EFFEXOR [Concomitant]
     Route: 048
  7. LISINOPRIL [Concomitant]
     Route: 048
  8. VYTORIN [Concomitant]
     Route: 048
  9. FUROSEMIDE [Concomitant]
     Route: 048
  10. STELARA [Suspect]
     Route: 058
     Dates: start: 20110831

REACTIONS (4)
  - BREAST ABSCESS [None]
  - URINARY TRACT INFECTION [None]
  - STAPHYLOCOCCAL INFECTION [None]
  - MASTITIS [None]
